FAERS Safety Report 19216374 (Version 1)
Quarter: 2021Q2

REPORT INFORMATION
  Report Type: Spontaneous
  Country: IT (occurrence: IT)
  Receive Date: 20210505
  Receipt Date: 20210505
  Transmission Date: 20210717
  Serious: Yes (Hospitalization)
  Sender: FDA-Public Use
  Company Number: IT-MYLANLABS-2021M1025458

PATIENT
  Age: 16 Year
  Sex: Male

DRUGS (10)
  1. SODIUM OXYBATE. [Suspect]
     Active Substance: SODIUM OXYBATE
     Dosage: 2 GRAM, Q8H
     Route: 065
  2. PIRACETAM [Suspect]
     Active Substance: PIRACETAM
     Indication: MYOCLONUS
     Dosage: 36 GRAM, QD
     Route: 042
  3. SODIUM OXYBATE. [Suspect]
     Active Substance: SODIUM OXYBATE
     Indication: MYOCLONUS
     Dosage: 1 GRAM, Q8H
     Route: 065
  4. SODIUM OXYBATE. [Suspect]
     Active Substance: SODIUM OXYBATE
     Dosage: 2 GRAM, Q6H
     Route: 065
  5. SODIUM OXYBATE. [Suspect]
     Active Substance: SODIUM OXYBATE
     Dosage: 2 GRAM, Q5H
     Route: 065
  6. SODIUM VALPROATE [Suspect]
     Active Substance: VALPROATE SODIUM
     Indication: MYOCLONUS
     Dosage: 2200 MILLIGRAM, QD
     Route: 042
  7. SODIUM OXYBATE. [Suspect]
     Active Substance: SODIUM OXYBATE
     Dosage: 2 GRAM, Q4H
     Route: 065
  8. LEVETIRACETAM. [Suspect]
     Active Substance: LEVETIRACETAM
     Indication: MYOCLONUS
     Dosage: 4000 MILLIGRAM, QD
     Route: 048
  9. OXITRIPTAN [Suspect]
     Active Substance: OXITRIPTAN
     Indication: MYOCLONUS
     Dosage: 1200 MILLIGRAM, QD
     Route: 048
  10. CLONAZEPAM. [Suspect]
     Active Substance: CLONAZEPAM
     Indication: MYOCLONUS
     Dosage: 11.25 MILLIGRAM, QD
     Route: 042

REACTIONS (1)
  - Off label use [Unknown]
